FAERS Safety Report 5761798-3 (Version None)
Quarter: 2008Q2

REPORT INFORMATION
  Report Type: 
  Country: None (occurrence: None)
  Receive Date: 20080606
  Receipt Date: 20080527
  Transmission Date: 20081010
  Serious: Yes (Death, Other)
  Sender: FDA-Public Use
  Company Number: US-PFIZER INC-2008045211

PATIENT
  Sex: Male

DRUGS (2)
  1. LYRICA [Suspect]
  2. ALCOHOL [Suspect]

REACTIONS (5)
  - ABNORMAL BEHAVIOUR [None]
  - COMPLETED SUICIDE [None]
  - DEPRESSION [None]
  - FEELING JITTERY [None]
  - INTENTIONAL OVERDOSE [None]
